FAERS Safety Report 8455630-7 (Version None)
Quarter: 2012Q2

REPORT INFORMATION
  Report Type: 
  Country: None (occurrence: None)
  Receive Date: 20120621
  Receipt Date: 20120612
  Transmission Date: 20120825
  Serious: Yes (Other)
  Sender: FDA-Public Use
  Company Number: US-MILLENNIUM PHARMACEUTICALS, INC.-2012-04177

PATIENT
  Sex: Male

DRUGS (4)
  1. VELCADE [Suspect]
     Indication: MULTIPLE MYELOMA
     Dosage: 2.7 MG, CYCLIC
     Route: 042
     Dates: start: 20111018, end: 20120217
  2. REVLIMID [Suspect]
     Indication: MULTIPLE MYELOMA
     Dosage: 25 MG, CYCLIC
     Route: 048
     Dates: start: 20110901
  3. REVLIMID [Suspect]
     Dosage: 15 MG, CYCLIC
     Route: 048
     Dates: start: 20111001
  4. DEXAMETHASONE SODIUM POSPHATE [Concomitant]
     Indication: MULTIPLE MYELOMA
     Dosage: 10 MG, CYCLIC
     Route: 042
     Dates: start: 20111018

REACTIONS (3)
  - RENAL FAILURE CHRONIC [None]
  - PRECEREBRAL ARTERY OCCLUSION [None]
  - NEUROPATHY PERIPHERAL [None]
